FAERS Safety Report 23957846 (Version 5)
Quarter: 2024Q3

REPORT INFORMATION
  Report Type: Report from Study
  Country: MX (occurrence: MX)
  Receive Date: 20240610
  Receipt Date: 20240725
  Transmission Date: 20241016
  Serious: Yes (Hospitalization, Other)
  Sender: BIOVITRUM
  Company Number: MX-AstraZeneca-2024A130465

PATIENT
  Age: 41 Day
  Sex: Male
  Weight: 4.6 kg

DRUGS (9)
  1. SYNAGIS [Suspect]
     Active Substance: PALIVIZUMAB
     Indication: Antiviral prophylaxis
     Dosage: MONTHLY?PALIVIZUMAB: 100.0MG/ML
     Route: 030
     Dates: end: 20240506
  2. SYNAGIS [Suspect]
     Active Substance: PALIVIZUMAB
     Dosage: MONTHLY?PALIVIZUMAB: 100.0MG/ML
     Route: 030
     Dates: start: 20240531, end: 20240531
  3. SYNAGIS [Suspect]
     Active Substance: PALIVIZUMAB
     Dosage: MONTHLY?PALIVIZUMAB: 100.0MG/ML
     Route: 030
     Dates: start: 20240705, end: 20240705
  4. ESOMEPRAZOLE [Suspect]
     Active Substance: ESOMEPRAZOLE
     Indication: Respiratory disorder prophylaxis
     Dosage: 2.5 MG DILUTED IN 3 ML
     Route: 048
  5. LACTOBACILLUS REUTERI [Concomitant]
     Active Substance: LACTOBACILLUS REUTERI
     Indication: Product used for unknown indication
  6. DIMETHICONE\GUAIAZULENE [Concomitant]
     Active Substance: DIMETHICONE\GUAIAZULENE
     Indication: Product used for unknown indication
  7. FOLIC ACID [Concomitant]
     Active Substance: FOLIC ACID
     Indication: Product used for unknown indication
  8. TRIBISOL [Concomitant]
     Indication: Product used for unknown indication
  9. FLUTICASONE [Concomitant]
     Active Substance: FLUTICASONE
     Indication: Product used for unknown indication

REACTIONS (12)
  - Respiratory distress [Recovered/Resolved]
  - Oxygen saturation decreased [Recovered/Resolved]
  - Cyanosis [Recovered/Resolved]
  - Discomfort [Recovered/Resolved]
  - Pain in extremity [Recovered/Resolved]
  - Vomiting [Recovered/Resolved]
  - Injection site pain [Recovered/Resolved]
  - Pyrexia [Recovered/Resolved]
  - Off label use [Unknown]
  - Asthenia [Unknown]
  - Restlessness [Not Recovered/Not Resolved]
  - Cough [Not Recovered/Not Resolved]

NARRATIVE: CASE EVENT DATE: 20240504
